FAERS Safety Report 15348857 (Version 6)
Quarter: 2019Q1

REPORT INFORMATION
  Report Type: Report from Study
  Country: None (occurrence: US)
  Receive Date: 20180904
  Receipt Date: 20190107
  Transmission Date: 20190417
  Serious: Yes (Other)
  Sender: FDA-Public Use
  Company Number: US-ABBVIE-18K-163-2471339-00

PATIENT
  Age: 61 Year
  Sex: Female

DRUGS (7)
  1. POTASSIUM [Concomitant]
     Active Substance: POTASSIUM
     Indication: PRODUCT USED FOR UNKNOWN INDICATION
  2. OMEPRAZOLE. [Concomitant]
     Active Substance: OMEPRAZOLE
     Indication: PRODUCT USED FOR UNKNOWN INDICATION
  3. HUMALOG [Concomitant]
     Active Substance: INSULIN LISPRO
     Indication: DIABETES MELLITUS
  4. VITAMIN D [Concomitant]
     Active Substance: CHOLECALCIFEROL
     Indication: PRODUCT USED FOR UNKNOWN INDICATION
  5. HUMIRA [Suspect]
     Active Substance: ADALIMUMAB
     Indication: CROHN^S DISEASE
     Dosage: HUMIRA CF
     Route: 058
     Dates: start: 20180226
  6. HUMIRA [Suspect]
     Active Substance: ADALIMUMAB
     Dosage: CITRATE FREE
     Route: 058
  7. LANTUS [Concomitant]
     Active Substance: INSULIN GLARGINE
     Indication: DIABETES MELLITUS

REACTIONS (21)
  - Blood pressure decreased [Unknown]
  - Arthritis [Unknown]
  - Blindness [Not Recovered/Not Resolved]
  - Nodule [Unknown]
  - Pain in extremity [Unknown]
  - Nephritis [Unknown]
  - Visual impairment [Unknown]
  - Renal disorder [Unknown]
  - Pyrexia [Unknown]
  - Renal function test abnormal [Unknown]
  - Trigger finger [Unknown]
  - Musculoskeletal disorder [Unknown]
  - Blood urea increased [Unknown]
  - Arthralgia [Recovered/Resolved]
  - Blood creatinine increased [Unknown]
  - Diabetic eye disease [Not Recovered/Not Resolved]
  - Hair texture abnormal [Unknown]
  - Microalbuminuria [Unknown]
  - Dizziness [Unknown]
  - Muscle spasms [Unknown]
  - Dehydration [Unknown]

NARRATIVE: CASE EVENT DATE: 2018
